FAERS Safety Report 5808508-9 (Version None)
Quarter: 2008Q3

REPORT INFORMATION
  Report Type: 
  Country: None (occurrence: None)
  Receive Date: 20080714
  Receipt Date: 20080702
  Transmission Date: 20090109
  Serious: Yes (Hospitalization)
  Sender: FDA-Public Use
  Company Number: RO-ELI_LILLY_AND_COMPANY-RO200807000880

PATIENT
  Sex: Female
  Weight: 75 kg

DRUGS (4)
  1. ZYPREXA [Suspect]
     Indication: SCHIZOAFFECTIVE DISORDER
     Dosage: 10 MG, 2/D
     Dates: start: 19980101
  2. VALPROATE SODIUM [Concomitant]
     Dosage: 300 MG, DAILY (1/D)
     Dates: start: 20060101
  3. LORAZEPAM [Concomitant]
     Dosage: 1 MG, DAILY (1/D)
     Dates: start: 20080101
  4. DIAZEPAM [Concomitant]
     Dosage: 10 MG, DAILY (1/D)
     Dates: start: 20080501

REACTIONS (2)
  - DRUG EXPOSURE DURING PREGNANCY [None]
  - HOSPITALISATION [None]
